FAERS Safety Report 4929655-X (Version None)
Quarter: 2006Q1

REPORT INFORMATION
  Report Type: 
  Country: None (occurrence: None)
  Receive Date: 20060223
  Receipt Date: 20060214
  Transmission Date: 20060701
  Serious: Yes (Death)
  Sender: FDA-Public Use
  Company Number: HQWYE796014FEB06

PATIENT
  Age: 40 Year
  Sex: Male

DRUGS (1)
  1. PHENERGAN W/ CODEINE [Suspect]

REACTIONS (3)
  - CARDIOMEGALY [None]
  - CARDIOMYOPATHY [None]
  - DRUG TOXICITY [None]
